FAERS Safety Report 9055073 (Version 1)
Quarter: 2013Q1

REPORT INFORMATION
  Report Type: Spontaneous
  Country: FR (occurrence: FR)
  Receive Date: 20130206
  Receipt Date: 20130206
  Transmission Date: 20140127
  Serious: Yes (Other)
  Sender: FDA-Public Use
  Company Number: FR-JNJFOC-20130105151

PATIENT
  Age: 46 Year
  Sex: Female

DRUGS (2)
  1. SIMPONI [Suspect]
     Indication: SAPHO SYNDROME
     Route: 058
     Dates: start: 201212, end: 201212
  2. SIMPONI [Suspect]
     Indication: SAPHO SYNDROME
     Route: 058
     Dates: start: 201211

REACTIONS (3)
  - Suffocation feeling [Recovered/Resolved]
  - Asthma [Recovered/Resolved]
  - Bronchospasm [Recovered/Resolved]
